FAERS Safety Report 6583625-7 (Version None)
Quarter: 2010Q1

REPORT INFORMATION
  Report Type: 
  Country: None (occurrence: None)
  Receive Date: 20100216
  Receipt Date: 20100208
  Transmission Date: 20100710
  Serious: Yes (Death)
  Sender: FDA-Public Use
  Company Number: JP-PFIZER INC-2010005362

PATIENT
  Age: 8 Month
  Sex: Male
  Weight: 3.4 kg

DRUGS (18)
  1. SILDENAFIL CITRATE [Suspect]
     Indication: PULMONARY ARTERIAL HYPERTENSION
     Dosage: 3.5MG/DAY, 6X/DAY
     Route: 048
     Dates: start: 20090611, end: 20090614
  2. SILDENAFIL CITRATE [Suspect]
     Dosage: 7 MG/DAY, 4X/DAY
     Route: 048
     Dates: start: 20090615, end: 20090622
  3. SILDENAFIL CITRATE [Suspect]
     Dosage: 14MG/DAY, 8X/DAY
     Route: 048
     Dates: start: 20090623, end: 20090705
  4. SILDENAFIL CITRATE [Suspect]
     Dosage: 7MG/DAY, 4X/DAY
     Route: 048
     Dates: start: 20090706, end: 20090708
  5. INOVAN [Concomitant]
     Indication: PULMONARY ARTERIAL HYPERTENSION
     Dosage: UNK
     Route: 042
     Dates: end: 20090708
  6. DOBUTREX [Concomitant]
     Indication: PULMONARY ARTERIAL HYPERTENSION
     Route: 042
     Dates: end: 20090708
  7. NITROGLYCERIN [Concomitant]
     Indication: PULMONARY ARTERIAL HYPERTENSION
     Route: 042
     Dates: end: 20090708
  8. INCREMIN [Concomitant]
     Route: 048
     Dates: end: 20090708
  9. THYRADIN S [Concomitant]
     Route: 048
     Dates: end: 20090708
  10. ERYTHROCIN LACTOBIONATE [Concomitant]
     Route: 048
     Dates: end: 20090708
  11. MUCODYNE [Concomitant]
     Route: 048
     Dates: end: 20090708
  12. LASIX [Concomitant]
     Route: 048
     Dates: end: 20090708
  13. ALDACTONE [Concomitant]
     Route: 048
     Dates: end: 20090708
  14. ONON [Concomitant]
     Route: 048
     Dates: end: 20090708
  15. PHENOBARBITAL TAB [Concomitant]
     Route: 048
     Dates: end: 20090708
  16. MIDAZOLAM HCL [Concomitant]
     Indication: PULMONARY ARTERIAL HYPERTENSION
     Route: 042
     Dates: start: 20090630, end: 20090708
  17. VECURONIUM BROMIDE [Concomitant]
     Indication: PULMONARY ARTERIAL HYPERTENSION
     Route: 042
     Dates: start: 20090630, end: 20090708
  18. TULOBUTEROL [Concomitant]
     Route: 062
     Dates: end: 20090708

REACTIONS (1)
  - RESPIRATORY FAILURE [None]
